FAERS Safety Report 7270937-7 (Version None)
Quarter: 2011Q1

REPORT INFORMATION
  Report Type: 
  Country: None (occurrence: None)
  Receive Date: 20110121
  Receipt Date: 20110121
  Transmission Date: 20110831
  Serious: Yes (Death, Life-Threatening, Hospitalization, Other)
  Sender: FDA-Public Use
  Company Number: None

PATIENT
  Age: 52 Year
  Sex: Male
  Weight: 54.4316 kg

DRUGS (3)
  1. CLOFARABINE UNKNOWN UNKNOWN [Suspect]
     Indication: ACUTE LYMPHOCYTIC LEUKAEMIA
     Dosage: BAG 3 DAYS INTRA-ARTERIAL
     Route: 013
     Dates: start: 20100207, end: 20100209
  2. METHOTREXCATE [Concomitant]
  3. CLOFARABINE UNKNOWN UNKNOWN [Suspect]
     Indication: ACUTE LYMPHOCYTIC LEUKAEMIA
     Dosage: BAY 3 DAYS INTRA-ARTERIAL
     Route: 013
     Dates: start: 20100404, end: 20100406

REACTIONS (5)
  - ACUTE LYMPHOCYTIC LEUKAEMIA RECURRENT [None]
  - ARTHRALGIA [None]
  - OSTEONECROSIS [None]
  - CARDIAC FAILURE [None]
  - BONE PAIN [None]
